FAERS Safety Report 9790376 (Version 1)
Quarter: 2013Q4

REPORT INFORMATION
  Report Type: Spontaneous
  Country: GB (occurrence: GB)
  Receive Date: 20131231
  Receipt Date: 20131231
  Transmission Date: 20140711
  Serious: Yes (Death, Other)
  Sender: FDA-Public Use
  Company Number: GB-BAXTER-2013BAX052928

PATIENT
  Sex: Female

DRUGS (1)
  1. FEIBA IMMUNO FACTOR VIII INHIBITOR BYPASSING FRACTION HUMAN VAPOUR HEA [Suspect]
     Indication: PRODUCT USED FOR UNKNOWN INDICATION
     Route: 065

REACTIONS (4)
  - Respiratory arrest [Unknown]
  - Convulsion [Unknown]
  - Renal failure acute [Fatal]
  - Acquired haemophilia [Fatal]
